FAERS Safety Report 8694555 (Version 4)
Quarter: 2012Q4

REPORT INFORMATION
  Report Type: 
  Country: US (occurrence: US)
  Receive Date: 20120731
  Receipt Date: 20120829
  Transmission Date: 20130627
  Serious: Yes (Hospitalization, Disabling, Other)
  Sender: FDA-Public Use
  Company Number: US-009507513-2011SP046646

PATIENT

DRUGS (5)
  1. NUVARING [Suspect]
     Indication: CONTRACEPTION
     Dosage: UNK
     Route: 067
     Dates: start: 200806
  2. NUVARING [Suspect]
     Indication: MENSTRUATION IRREGULAR
     Dosage: 0.120-0.015 mg
     Route: 067
     Dates: start: 20081230, end: 200909
  3. CYMBALTA [Concomitant]
     Indication: DEPRESSION
     Dosage: 60 mg, bid
     Dates: end: 200911
  4. GLUCOPHAGE [Concomitant]
     Indication: PRODUCT USED FOR UNKNOWN INDICATION
     Dosage: 500 mg, tid
  5. VITAMINS (UNSPECIFIED) [Concomitant]
     Indication: PRODUCT USED FOR UNKNOWN INDICATION

REACTIONS (43)
  - Respiratory failure [Unknown]
  - Intracranial venous sinus thrombosis [Recovered/Resolved with Sequelae]
  - Cerebral infarction [Not Recovered/Not Resolved]
  - Brain oedema [Unknown]
  - Hypercoagulation [Unknown]
  - Convulsion [Recovered/Resolved]
  - Balance disorder [Unknown]
  - Hypertension [Unknown]
  - Transient ischaemic attack [Unknown]
  - Cognitive disorder [Not Recovered/Not Resolved]
  - Dizziness [Unknown]
  - Headache [Unknown]
  - Polymenorrhoea [Unknown]
  - Pelvic pain [Unknown]
  - Adverse drug reaction [Unknown]
  - Stress urinary incontinence [Unknown]
  - Sleep disorder [Not Recovered/Not Resolved]
  - Inadequate diet [Unknown]
  - Cystocele [Unknown]
  - Endometrial hypertrophy [Unknown]
  - Anaemia [Unknown]
  - Influenza [Unknown]
  - Hyperlipidaemia [Unknown]
  - Ear pain [Unknown]
  - Meniscus injury [Unknown]
  - Hypersomnia [Not Recovered/Not Resolved]
  - Dyspnoea exertional [Unknown]
  - Pain in extremity [Unknown]
  - Dyspepsia [Unknown]
  - Back pain [Unknown]
  - Pain in extremity [Unknown]
  - Claustrophobia [Unknown]
  - Alopecia [Unknown]
  - Snoring [Unknown]
  - Seasonal allergy [Unknown]
  - Depression [Not Recovered/Not Resolved]
  - Urinary tract infection [Unknown]
  - Anxiety [Not Recovered/Not Resolved]
  - Treatment noncompliance [Unknown]
  - Agitation [Not Recovered/Not Resolved]
  - Headache [Unknown]
  - Vulvovaginal candidiasis [Recovered/Resolved]
  - Joint dislocation [Recovered/Resolved]
